FAERS Safety Report 20947249 (Version 2)
Quarter: 2022Q3

REPORT INFORMATION
  Report Type: Spontaneous
  Country: US (occurrence: US)
  Receive Date: 20220610
  Receipt Date: 20220707
  Transmission Date: 20221027
  Serious: Yes (Other)
  Sender: FDA-Public Use
  Company Number: US-009507513-2206USA002357

PATIENT
  Sex: Male

DRUGS (2)
  1. JANUVIA [Suspect]
     Active Substance: SITAGLIPTIN PHOSPHATE
     Indication: Diabetes mellitus
     Dosage: UNK
     Route: 048
     Dates: end: 202201
  2. GLIPIZIDE [Suspect]
     Active Substance: GLIPIZIDE
     Indication: Diabetes mellitus
     Dosage: UNK

REACTIONS (5)
  - Diabetes mellitus inadequate control [Unknown]
  - Blood glucose increased [Unknown]
  - Malaise [Unknown]
  - Inability to afford medication [Unknown]
  - Product dose omission issue [Unknown]

NARRATIVE: CASE EVENT DATE: 20220101
